FAERS Safety Report 16177334 (Version 1)
Quarter: 2019Q2

REPORT INFORMATION
  Report Type: Spontaneous
  Country: CA (occurrence: CA)
  Receive Date: 20190410
  Receipt Date: 20190410
  Transmission Date: 20190711
  Serious: Yes (Other)
  Sender: FDA-Public Use
  Company Number: CA-TEVA-2019-CA-1036888

PATIENT
  Age: 63 Year
  Sex: Female

DRUGS (14)
  1. HUMIRA [Suspect]
     Active Substance: ADALIMUMAB
     Dosage: 40MILLIGRAM, 1EVERY 2 WEEKS, SOLUTION SUBCUTANEOUS
     Route: 058
  2. HUMIRA [Suspect]
     Active Substance: ADALIMUMAB
     Dosage: 40MILLIGRAM
     Route: 065
  3. APO-LEFLUNOMIDE [Suspect]
     Active Substance: LEFLUNOMIDE
     Indication: RHEUMATOID ARTHRITIS
     Dosage: 20 MILLIGRAM DAILY;
     Route: 065
  4. HUMIRA [Suspect]
     Active Substance: ADALIMUMAB
     Indication: RHEUMATOID ARTHRITIS
     Dosage: 1EVERY 1WEEKS
     Route: 058
  5. ORENCIA [Suspect]
     Active Substance: ABATACEPT
     Dosage: 500MILLIGRAM, 1EVERY 1MONTH
     Route: 042
  6. XELJANZ [Concomitant]
     Active Substance: TOFACITINIB CITRATE
     Indication: RHEUMATOID ARTHRITIS
     Dosage: 10 MILLIGRAM DAILY;
     Route: 065
  7. ORENCIA [Suspect]
     Active Substance: ABATACEPT
     Dosage: 500MILLIGRAM
     Route: 065
  8. ANAKINRA [Suspect]
     Active Substance: ANAKINRA
     Indication: RHEUMATOID ARTHRITIS
     Dosage: 100 MILLIGRAM DAILY;
     Route: 058
  9. ENBREL [Suspect]
     Active Substance: ETANERCEPT
     Indication: RHEUMATOID ARTHRITIS
     Dosage: 50MILLIGRAM, 1EVERY 1WEEKS
     Route: 058
  10. METHOTREXATE. [Suspect]
     Active Substance: METHOTREXATE
     Dosage: 20 MILLIGRAM DAILY;
     Route: 048
  11. ACTEMRA [Suspect]
     Active Substance: TOCILIZUMAB
     Indication: RHEUMATOID ARTHRITIS
     Dosage: 8MILLIGRAM
     Route: 042
  12. ORENCIA [Suspect]
     Active Substance: ABATACEPT
     Indication: RHEUMATOID ARTHRITIS
     Route: 042
  13. HYDROXYCHLOROQUINE [Suspect]
     Active Substance: HYDROXYCHLOROQUINE
     Indication: RHEUMATOID ARTHRITIS
     Dosage: 200MILLIGRAM
     Route: 065
  14. METHOTREXATE. [Suspect]
     Active Substance: METHOTREXATE
     Indication: PRODUCT USED FOR UNKNOWN INDICATION
     Dosage: 12.5MILLIGRAM
     Route: 065

REACTIONS (12)
  - Rash [Unknown]
  - Rheumatoid factor positive [Unknown]
  - Synovitis [Unknown]
  - Cutaneous vasculitis [Unknown]
  - Rheumatoid arthritis [Unknown]
  - Spinal stenosis [Unknown]
  - Drug ineffective [Unknown]
  - Osteoarthritis [Unknown]
  - Secretion discharge [Unknown]
  - Condition aggravated [Unknown]
  - Drug intolerance [Unknown]
  - Oral mucosal exfoliation [Unknown]
